FAERS Safety Report 10006089 (Version 2)
Quarter: 2014Q1

REPORT INFORMATION
  Report Type: Spontaneous
  Country: US (occurrence: US)
  Receive Date: 20140313
  Receipt Date: 20140313
  Transmission Date: 20141002
  Serious: Yes (Disabling)
  Sender: FDA-Public Use
  Company Number: US-GE HEALTHCARE MEDICAL DIAGNOSTICS-OSCN-PR-1005S-0134

PATIENT
  Age: 64 Year
  Sex: Female

DRUGS (4)
  1. OMNISCAN [Suspect]
     Indication: RENAL CELL CARCINOMA
     Route: 042
     Dates: start: 20060526, end: 20060526
  2. OMNISCAN [Suspect]
     Indication: OSTEOMYELITIS
     Route: 042
     Dates: start: 20060530, end: 20060530
  3. OMNISCAN [Suspect]
     Route: 042
     Dates: start: 20070116, end: 20070116
  4. GADOLINIUM (UNSPECIFIED) [Suspect]
     Indication: CONVULSION
     Route: 042
     Dates: start: 20080123, end: 20080123

REACTIONS (1)
  - Nephrogenic systemic fibrosis [Not Recovered/Not Resolved]
